FAERS Safety Report 8243708-2 (Version None)
Quarter: 2012Q1

REPORT INFORMATION
  Report Type: 
  Country: None (occurrence: None)
  Receive Date: 20120329
  Receipt Date: 20110407
  Transmission Date: 20120608
  Serious: No
  Sender: FDA-Public Use
  Company Number: US-MYLANLABS-2011S1004305

PATIENT
  Age: 45 Year
  Sex: Female

DRUGS (13)
  1. MIRAPEX [Concomitant]
  2. IBUPROFEN [Concomitant]
  3. VITAMIN B-12 [Concomitant]
  4. VITAMIN D [Concomitant]
  5. NEOCON [Concomitant]
     Indication: CONTRACEPTION
  6. SEROQUEL [Concomitant]
  7. TYLENOL [Concomitant]
  8. ATIVAN [Concomitant]
  9. MULTI-VITAMIN [Concomitant]
  10. FISH OIL [Concomitant]
  11. EMSAM [Suspect]
     Dosage: CHANGED Q24H.
     Route: 062
     Dates: start: 20110302, end: 20110307
  12. EMSAM [Suspect]
     Indication: DEPRESSION
     Dosage: CHANGED Q24H.
     Route: 062
     Dates: start: 20110208, end: 20110302
  13. MAGNESIUM [Concomitant]

REACTIONS (5)
  - APPLICATION SITE PRURITUS [None]
  - APPLICATION SITE ERYTHEMA [None]
  - APPLICATION SITE RASH [None]
  - APPLICATION SITE URTICARIA [None]
  - APPLICATION SITE DISCOMFORT [None]
